FAERS Safety Report 4297535-1 (Version None)
Quarter: 2004Q1

REPORT INFORMATION
  Report Type: 
  Country: None (occurrence: None)
  Receive Date: 20040126
  Receipt Date: 20030829
  Transmission Date: 20041129
  Serious: No
  Sender: FDA-Public Use
  Company Number: USA030945860

PATIENT
  Age: 11 Year
  Sex: Female
  Weight: 51 kg

DRUGS (1)
  1. STRATTERA [Suspect]
     Indication: ATTENTION DEFICIT/HYPERACTIVITY DISORDER
     Dosage: 60 MG/DAY
     Dates: start: 20030819

REACTIONS (5)
  - AGGRESSION [None]
  - CRYING [None]
  - DRUG INEFFECTIVE [None]
  - EDUCATIONAL PROBLEM [None]
  - MEMORY IMPAIRMENT [None]
